FAERS Safety Report 7539716-7 (Version None)
Quarter: 2011Q2

REPORT INFORMATION
  Report Type: 
  Country: None (occurrence: None)
  Receive Date: 20110610
  Receipt Date: 20080822
  Transmission Date: 20111010
  Serious: Yes (Other)
  Sender: FDA-Public Use
  Company Number: US-BAYER-200827851NA

PATIENT
  Age: 59 Year
  Sex: Female

DRUGS (90)
  1. MAGNEVIST [Suspect]
     Dosage: 14 ML, ONCE
     Dates: start: 20010816, end: 20010816
  2. MAGNEVIST [Suspect]
     Dosage: 14 ML, ONCE
     Dates: start: 20010816, end: 20010816
  3. MAGNEVIST [Suspect]
     Dosage: UNK, ONCE
     Dates: start: 20030708, end: 20030708
  4. MAGNEVIST [Suspect]
     Dosage: 12 ML, ONCE
     Dates: start: 20030710, end: 20030710
  5. PRILOSEC [Concomitant]
  6. ZOLOFT [Concomitant]
  7. FOSAMAX [Concomitant]
  8. RENAGEL [Concomitant]
  9. GADOLINIUM IN UNSPECIFIED DRUG [Suspect]
     Dosage: UNK, ONCE
     Dates: start: 19970818, end: 19970818
  10. MAGNEVIST [Suspect]
     Dosage: 12 ML, ONCE
     Dates: start: 20041214, end: 20041214
  11. MAGNEVIST [Suspect]
     Dosage: UNK, ONCE
     Dates: start: 20020530, end: 20020530
  12. MAGNEVIST [Suspect]
     Dosage: 13 ML, ONCE
     Dates: start: 20030114, end: 20030114
  13. MAGNEVIST [Suspect]
     Dosage: 26 ML, ONCE
     Dates: start: 20040108, end: 20040108
  14. PREDNISONE [Concomitant]
  15. CARDURA [Concomitant]
  16. ACCUPRIL [Concomitant]
  17. LORAZEPAM [Concomitant]
  18. GADOLINIUM IN UNSPECIFIED DRUG [Suspect]
     Dosage: UNK UNK, ONCE
     Dates: start: 20040106, end: 20040106
  19. MAGNEVIST [Suspect]
     Dosage: 26 ML, ONCE
     Dates: start: 20040108, end: 20040108
  20. MAGNEVIST [Suspect]
     Dosage: 12 ML, ONCE
     Dates: start: 20040608, end: 20040608
  21. MAGNEVIST [Suspect]
     Dosage: 13 ML, ONCE
     Dates: start: 20050614, end: 20050614
  22. OPTIMARK [Suspect]
     Indication: NUCLEAR MAGNETIC RESONANCE IMAGING
  23. BACTRIM [Concomitant]
  24. TRAMADOL HCL [Concomitant]
  25. ZANTAC [Concomitant]
  26. CATAPRES-TTS-1 [Concomitant]
  27. VITAMIN E [Concomitant]
  28. PERCOCET [Concomitant]
  29. GADOLINIUM IN UNSPECIFIED DRUG [Suspect]
     Dosage: UNK, ONCE
     Dates: start: 19980107, end: 19980107
  30. GADOLINIUM IN UNSPECIFIED DRUG [Suspect]
     Dosage: UNK, ONCE
     Dates: start: 19970530, end: 19970530
  31. MAGNEVIST [Suspect]
     Dosage: 13 ML, ONCE
     Dates: start: 20020903, end: 20020903
  32. MAGNEVIST [Suspect]
     Dosage: 24 ML, ONCE
     Dates: start: 20030417, end: 20030417
  33. GADOLINIUM IN UNSPECIFIED DRUG [Suspect]
     Dosage: UNK, ONCE
     Dates: start: 20000414, end: 20000414
  34. GADOLINIUM IN UNSPECIFIED DRUG [Suspect]
     Dosage: UNK, ONCE
     Dates: start: 19970602, end: 19970602
  35. MAGNEVIST [Suspect]
     Dosage: UNK, ONCE
     Dates: start: 20030417, end: 20030417
  36. MAGNEVIST [Suspect]
     Dosage: 22 ML, ONCE
     Dates: start: 20060821, end: 20060821
  37. MAGNEVIST [Suspect]
     Dosage: 15 ML, ONCE
     Dates: start: 20070215, end: 20070215
  38. OMNISCAN [Suspect]
     Indication: NUCLEAR MAGNETIC RESONANCE IMAGING
  39. MULTIHANCE [Suspect]
     Indication: NUCLEAR MAGNETIC RESONANCE IMAGING
  40. VALCYTE [Concomitant]
  41. SENSIPAR [Concomitant]
  42. ACETAMINOPHEN [Concomitant]
  43. IRON [CITRIC ACID,FERROUS SULFATE] [Concomitant]
  44. LIPITOR [Concomitant]
  45. ASCORBIC ACID [Concomitant]
  46. GADOLINIUM IN UNSPECIFIED DRUG [Suspect]
     Dosage: UNK
     Dates: start: 20031014, end: 20031014
  47. GADOLINIUM IN UNSPECIFIED DRUG [Suspect]
     Dosage: UNK, ONCE
     Dates: start: 19981201, end: 19981201
  48. MAGNEVIST [Suspect]
     Dosage: 14 ML, ONCE
     Dates: start: 20010213, end: 20010213
  49. MAGNEVIST [Suspect]
     Dosage: 15 ML, ONCE
     Dates: start: 20010814, end: 20010814
  50. MAGNEVIST [Suspect]
     Dosage: 24 ML, ONCE
     Dates: start: 20040610, end: 20040610
  51. MAGNEVIST [Suspect]
     Dosage: 22 ML, ONCE
     Dates: start: 20060821, end: 20060821
  52. MAGNEVIST [Suspect]
  53. PROHANCE [Suspect]
     Indication: NUCLEAR MAGNETIC RESONANCE IMAGING
  54. PROGRAF [Concomitant]
  55. CELLCEPT [Concomitant]
  56. DOCUSATE SODIUM [Concomitant]
  57. RENAL [VITAMINS NOS] [Concomitant]
  58. HYDROCODONE [HYDROCODONE] [Concomitant]
  59. LASIX [Concomitant]
  60. THALLIUM (201 TL) [Concomitant]
  61. BICITRA [CITRIC ACID,SODIUM CITRATE] [Concomitant]
  62. HORMONES NOS [Concomitant]
  63. NEPHRO-VITE [VITAMINS NOS] [Concomitant]
  64. PROMETHAZINE [Concomitant]
  65. MAGNEVIST [Suspect]
     Indication: NUCLEAR MAGNETIC RESONANCE IMAGING
     Dosage: 15 ML, ONCE
     Dates: start: 20020305, end: 20020305
  66. MAGNEVIST [Suspect]
     Dosage: 14 ML, ONCE
     Dates: start: 20050615, end: 20050615
  67. MAGNEVIST [Suspect]
     Dosage: 15 ML, ONCE
     Dates: start: 20020307, end: 20020307
  68. MAGNEVIST [Suspect]
     Dosage: 11 ML, ONCE
     Dates: start: 20060130, end: 20060130
  69. MAGNEVIST [Suspect]
     Dosage: 20 ML, ONCE
     Dates: start: 20060201, end: 20060201
  70. SYNTHROID [Concomitant]
  71. ASPIRIN [Concomitant]
  72. DIAZEPAM [Concomitant]
  73. MECLIZINE [Concomitant]
  74. NORVASC [Concomitant]
  75. DARVOCET-N 50 [Concomitant]
  76. GADOLINIUM IN UNSPECIFIED DRUG [Suspect]
     Dosage: UNK, ONCE
     Dates: start: 19970519, end: 19970519
  77. MAGNEVIST [Suspect]
     Dosage: 26 ML, ONCE
     Dates: start: 20050614, end: 20050614
  78. MAGNEVIST [Suspect]
     Dosage: 15 ML, ONCE
     Dates: start: 20020307, end: 20020307
  79. MAGNEVIST [Suspect]
     Dosage: 28 ML, ONCE
     Dates: start: 20020905, end: 20020905
  80. MAGNEVIST [Suspect]
     Dosage: 13 ML, ONCE
     Dates: start: 20030415, end: 20030415
  81. MAGNEVIST [Suspect]
     Dosage: 12 ML, ONCE
     Dates: start: 20040106, end: 20040106
  82. MAGNEVIST [Suspect]
     Dosage: UNK, ONCE
     Dates: start: 20040610, end: 20040610
  83. MAGNEVIST [Suspect]
     Dosage: 10 ML, ONCE
     Dates: start: 20060201, end: 20060201
  84. GABAPENTIN [Concomitant]
  85. EPOGEN [Concomitant]
  86. METOPROLOL SUCCINATE [Concomitant]
  87. LIPOFLAVONOID [WITH DEXPANTH,METHION,AND OTHERS] [Concomitant]
  88. ZANTAC [Concomitant]
  89. SENOKOT [SENNA ALEXANDRINA] [Concomitant]
  90. XANAX [Concomitant]

REACTIONS (22)
  - INJURY [None]
  - SKIN HYPERTROPHY [None]
  - SKIN EXFOLIATION [None]
  - PAIN [None]
  - SCAR [None]
  - NEPHROGENIC SYSTEMIC FIBROSIS [None]
  - JOINT RANGE OF MOTION DECREASED [None]
  - JOINT STIFFNESS [None]
  - ANHEDONIA [None]
  - SKIN INDURATION [None]
  - PRURITUS GENERALISED [None]
  - EXCORIATION [None]
  - SKIN TIGHTNESS [None]
  - SKIN HYPERPIGMENTATION [None]
  - PAIN OF SKIN [None]
  - ERYTHEMA [None]
  - SKIN DISCOLOURATION [None]
  - ANXIETY [None]
  - EMOTIONAL DISTRESS [None]
  - MUSCULOSKELETAL STIFFNESS [None]
  - GAIT DISTURBANCE [None]
  - DRY SKIN [None]
